FAERS Safety Report 8814491 (Version 1)
Quarter: 2012Q4

REPORT INFORMATION
  Report Type: 
  Country: US (occurrence: US)
  Receive Date: 20120928
  Receipt Date: 20120928
  Transmission Date: 20130627
  Serious: Yes (Other)
  Sender: FDA-Public Use
  Company Number: US-JNJFOC-20120910308

PATIENT
  Sex: Male

DRUGS (4)
  1. XARELTO [Suspect]
     Indication: CEREBROVASCULAR ACCIDENT PROPHYLAXIS
     Dates: start: 2012
  2. XARELTO [Suspect]
     Indication: ATRIAL FIBRILLATION
     Dates: start: 2012
  3. AMIODARONE [Suspect]
     Indication: ARRHYTHMIA
     Route: 048
  4. MULTAQ [Concomitant]
     Indication: ARRHYTHMIA

REACTIONS (1)
  - Supraventricular tachycardia [Unknown]
